FAERS Safety Report 5345093-2 (Version None)
Quarter: 2007Q2

REPORT INFORMATION
  Report Type: 
  Country: None (occurrence: None)
  Receive Date: 20070601
  Receipt Date: 20070522
  Transmission Date: 20071010
  Serious: Yes (Hospitalization, Other)
  Sender: FDA-Public Use
  Company Number: GXKR2007FR04071

PATIENT
  Age: 63 Year
  Sex: Male

DRUGS (1)
  1. METHYLPREDNISOLONE [Suspect]
     Indication: ANTIINFLAMMATORY THERAPY
     Dosage: 1 G, INTRAVENOUS
     Route: 042

REACTIONS (3)
  - CEREBROSPINAL FISTULA [None]
  - CONDITION AGGRAVATED [None]
  - MOTOR DYSFUNCTION [None]
